FAERS Safety Report 6058434-8 (Version None)
Quarter: 2009Q1

REPORT INFORMATION
  Report Type: 
  Country: None (occurrence: None)
  Receive Date: 20090127
  Receipt Date: 20090127
  Transmission Date: 20090719
  Serious: No
  Sender: FDA-Public Use
  Company Number: None

PATIENT
  Sex: Female
  Weight: 92.4 kg

DRUGS (4)
  1. BEVACIZUMAB (RHUMAB VEGF) [Suspect]
     Dosage: 1825 MG
     Dates: end: 20080917
  2. CAMPTOSAR [Suspect]
     Dosage: 1415 MG
     Dates: end: 20080917
  3. LEUCOVORIN CALCIUM [Suspect]
     Dosage: 3150 MG
     Dates: end: 20080917
  4. FLUOROURACIL [Suspect]
     Dosage: 21975 MG
     Dates: end: 20080919

REACTIONS (3)
  - COAGULOPATHY [None]
  - PULMONARY EMBOLISM [None]
  - THROMBOSIS [None]
